FAERS Safety Report 10565656 (Version 1)
Quarter: 2014Q4

REPORT INFORMATION
  Report Type: Spontaneous
  Country: US (occurrence: None)
  Receive Date: 20141104
  Receipt Date: 20141104
  Transmission Date: 20150529
  Serious: Yes (Life-Threatening, Hospitalization)
  Sender: FDA-Public Use
  Company Number: None

PATIENT
  Age: 57 Year
  Sex: Male
  Weight: 105.24 kg

DRUGS (11)
  1. NUVIGUL (ARMODAFINIL) [Concomitant]
  2. INVOKANA [Concomitant]
     Active Substance: CANAGLIFLOZIN
  3. LEVEMIR FLEXTOUCH (INSULIN DETEMIR) [Concomitant]
  4. CELEBREX [Concomitant]
     Active Substance: CELECOXIB
  5. FISH OIL [Concomitant]
     Active Substance: FISH OIL
  6. CANAGLIFLOZIN [Suspect]
     Active Substance: CANAGLIFLOZIN
     Indication: HYPERGLYCAEMIA
     Dosage: 1 PILL
     Route: 048
     Dates: start: 20140601, end: 20140831
  7. ARMODAFINIL. [Concomitant]
     Active Substance: ARMODAFINIL
  8. ACETAMINOPHEN/HYDROCODONE [Concomitant]
     Active Substance: ACETAMINOPHEN\HYDROCODONE
  9. NOVOLOG FLEXPEN (INSULIN ASPART) [Concomitant]
  10. ONGLYZA [Concomitant]
     Active Substance: SAXAGLIPTIN HYDROCHLORIDE
  11. CELEBREX [Concomitant]
     Active Substance: CELECOXIB

REACTIONS (7)
  - Polyuria [None]
  - Glucose urine present [None]
  - Hypernatraemia [None]
  - Polydipsia [None]
  - Metabolic acidosis [None]
  - Blood glucose increased [None]
  - Blood ketone body increased [None]

NARRATIVE: CASE EVENT DATE: 20140831
